FAERS Safety Report 10688500 (Version 2)
Quarter: 2015Q1

REPORT INFORMATION
  Report Type: Report from Study
  Country: US (occurrence: US)
  Receive Date: 20150102
  Receipt Date: 20150102
  Transmission Date: 20150720
  Serious: Yes (Death, Hospitalization)
  Sender: FDA-Public Use
  Company Number: US-BAYER-2014-100313

PATIENT
  Age: 71 Year
  Sex: Female

DRUGS (1)
  1. NEXAVAR [Suspect]
     Active Substance: SORAFENIB
     Indication: HEPATIC CANCER
     Dosage: 400 MG, BID
     Route: 048
     Dates: start: 20140616

REACTIONS (7)
  - Skin lesion [None]
  - Myocardial infarction [Fatal]
  - Gastroenteritis viral [None]
  - Pain [None]
  - Fatigue [None]
  - Chest discomfort [None]
  - Decreased appetite [None]

NARRATIVE: CASE EVENT DATE: 2014
